FAERS Safety Report 8435859-4 (Version None)
Quarter: 2012Q2

REPORT INFORMATION
  Report Type: 
  Country: None (occurrence: None)
  Receive Date: 20120614
  Receipt Date: 20120613
  Transmission Date: 20120825
  Serious: Yes (Death)
  Sender: FDA-Public Use
  Company Number: US-ROCHE-1029150

PATIENT
  Sex: Female
  Weight: 74.002 kg

DRUGS (3)
  1. AVASTIN [Suspect]
     Indication: PRODUCT USED FOR UNKNOWN INDICATION
     Route: 042
     Dates: start: 20100303, end: 20100609
  2. XELODA [Suspect]
     Indication: PRODUCT USED FOR UNKNOWN INDICATION
  3. OXALIPLATIN [Concomitant]
     Dates: start: 20100303, end: 20100609

REACTIONS (1)
  - DEATH [None]
